FAERS Safety Report 21269803 (Version 1)
Quarter: 2022Q3

REPORT INFORMATION
  Report Type: Spontaneous
  Country: US (occurrence: US)
  Receive Date: 20220830
  Receipt Date: 20220830
  Transmission Date: 20221027
  Serious: Yes (Life-Threatening)
  Sender: FDA-Public Use
  Company Number: US-BAYER-2022A121627

PATIENT

DRUGS (1)
  1. ALEVE [Suspect]
     Active Substance: NAPROXEN SODIUM
     Indication: Scoliosis
     Dosage: UNK
     Route: 065

REACTIONS (3)
  - Ulcer haemorrhage [Unknown]
  - Dyspnoea [Unknown]
  - Product use in unapproved indication [Unknown]
